FAERS Safety Report 4774953-6 (Version None)
Quarter: 2005Q3

REPORT INFORMATION
  Report Type: 
  Country: None (occurrence: None)
  Receive Date: 20050920
  Receipt Date: 20050906
  Transmission Date: 20060218
  Serious: Yes (Hospitalization)
  Sender: FDA-Public Use
  Company Number: S05-FRA-03336-01

PATIENT
  Age: 57 Year
  Sex: Male

DRUGS (6)
  1. CITALOPRAM HYDROBROMIDE [Suspect]
     Dosage: 20 MG BID PO
     Route: 048
  2. ALDACTONE [Suspect]
     Dosage: 1 UNK  QD PO
     Route: 048
  3. LEGALON (SILYMARIN) [Suspect]
     Dosage: 1 UNK TID PO
     Route: 048
  4. VALIUM [Suspect]
     Dosage: 1 UNK TID PO
     Route: 048
  5. CETORAN (ORNITHINE OXOGURATE) [Suspect]
     Dosage: 1 UNK TID PO
     Route: 048
  6. ESPERAL (DISULFIRAM) [Suspect]

REACTIONS (6)
  - BLOOD LACTIC ACID INCREASED [None]
  - DEPRESSED LEVEL OF CONSCIOUSNESS [None]
  - ORAL INTAKE REDUCED [None]
  - OVERDOSE [None]
  - PNEUMONIA ASPIRATION [None]
  - VOMITING [None]
